FAERS Safety Report 4641030-4 (Version None)
Quarter: 2005Q2

REPORT INFORMATION
  Report Type: 
  Country: None (occurrence: None)
  Receive Date: 20050421
  Receipt Date: 20040707
  Transmission Date: 20051028
  Serious: No
  Sender: FDA-Public Use
  Company Number: US-BRISTOL-MYERS SQUIBB COMPANY-12643037

PATIENT
  Age: 44 Year
  Sex: Female
  Weight: 81 kg

DRUGS (3)
  1. LAC-HYDRIN [Suspect]
     Indication: ACNE
     Route: 061
     Dates: start: 20040703, end: 20040701
  2. RETIN-A [Concomitant]
  3. VANIQA [Concomitant]

REACTIONS (2)
  - SKIN DISCOLOURATION [None]
  - SKIN IRRITATION [None]
